FAERS Safety Report 17998864 (Version 1)
Quarter: 2020Q3

REPORT INFORMATION
  Report Type: Spontaneous
  Country: US (occurrence: US)
  Receive Date: 20200708
  Receipt Date: 20200708
  Transmission Date: 20201103
  Serious: Yes (Hospitalization)
  Sender: FDA-Public Use
  Company Number: None

PATIENT
  Sex: Male

DRUGS (4)
  1. IPRATPOPIUM [Concomitant]
  2. XARELTO [Concomitant]
     Active Substance: RIVAROXABAN
  3. HUMIRA [Suspect]
     Active Substance: ADALIMUMAB
     Indication: PSORIATIC ARTHROPATHY
     Dosage: ?          OTHER FREQUENCY:EVERY 14 DAYS;?
     Route: 058
     Dates: start: 20151013
  4. DOK [Concomitant]
     Active Substance: DOCUSATE SODIUM

REACTIONS (1)
  - Fatigue [None]
